FAERS Safety Report 7479141-0 (Version None)
Quarter: 2011Q2

REPORT INFORMATION
  Report Type: 
  Country: None (occurrence: None)
  Receive Date: 20110513
  Receipt Date: 20110509
  Transmission Date: 20111010
  Serious: Yes (Hospitalization, Other)
  Sender: FDA-Public Use
  Company Number: FR-BRISTOL-MYERS SQUIBB COMPANY-15579782

PATIENT
  Age: 81 Year
  Sex: Female

DRUGS (5)
  1. PLAVIX [Concomitant]
     Route: 048
  2. EFFEXOR [Concomitant]
     Route: 048
  3. IRBESARTAN [Suspect]
     Indication: HYPERTENSION
     Route: 048
     Dates: start: 20100917, end: 20110119
  4. OPTRUMA [Concomitant]
     Route: 048
  5. LORAZEPAM [Concomitant]
     Route: 048

REACTIONS (3)
  - GASTROENTERITIS [None]
  - DEHYDRATION [None]
  - RENAL FAILURE ACUTE [None]
